FAERS Safety Report 9881631 (Version 1)
Quarter: 2014Q1

REPORT INFORMATION
  Report Type: Spontaneous
  Country: IN (occurrence: IN)
  Receive Date: 20140207
  Receipt Date: 20140207
  Transmission Date: 20141002
  Serious: Yes (Death, Hospitalization, Other)
  Sender: FDA-Public Use
  Company Number: IN-WATSON-2014-01667

PATIENT
  Age: 46 Year
  Sex: Male

DRUGS (4)
  1. TRIMETHOPRIM-SULFAMETHOXAZOLE (UNKNOWN) [Suspect]
     Indication: OPPORTUNISTIC INFECTION PROPHYLAXIS
     Dosage: 960 MG, DAILY
     Route: 065
  2. STAVUDINE (UNKNOWN) [Suspect]
     Indication: HIV INFECTION
     Dosage: 300 MG, BID
     Route: 065
  3. NEVIRAPINE [Suspect]
     Indication: HIV INFECTION
     Dosage: 200 MG, DAILY
     Route: 065
  4. LAMIVUDINE (UNKNOWN) [Suspect]
     Indication: HIV INFECTION
     Dosage: 150 MG, BID
     Route: 065

REACTIONS (3)
  - Stevens-Johnson syndrome [Fatal]
  - Vomiting [Not Recovered/Not Resolved]
  - Hepatic enzyme increased [Unknown]
